FAERS Safety Report 12465013 (Version 1)
Quarter: 2016Q2

REPORT INFORMATION
  Report Type: Not Available
  Country: JP (occurrence: JP)
  Receive Date: 20160614
  Receipt Date: 20160614
  Transmission Date: 20160815
  Serious: Yes (Hospitalization)
  Sender: FDA-Public Use
  Company Number: JP-ANIPHARMA-2016-JP-000005

PATIENT
  Age: 78 Year
  Sex: Female

DRUGS (3)
  1. MEMANTINE. [Concomitant]
     Active Substance: MEMANTINE
     Dosage: UNKNOWN
     Route: 065
  2. FLUVOXAMINE (NON-SPECIFIC) [Suspect]
     Active Substance: FLUVOXAMINE
     Dosage: UNKNOWN
     Route: 065
  3. VALPROIC ACID (NON-SPECIFIC) [Suspect]
     Active Substance: VALPROIC ACID
     Dosage: UNKNOWN
     Route: 065

REACTIONS (4)
  - Decubitus ulcer [Unknown]
  - Dehydration [Recovered/Resolved]
  - Akinesia [Unknown]
  - Blood creatine phosphokinase increased [Recovered/Resolved]
